FAERS Safety Report 18889158 (Version 1)
Quarter: 2021Q1

REPORT INFORMATION
  Report Type: Spontaneous
  Country: CN (occurrence: CN)
  Receive Date: 20210212
  Receipt Date: 20210212
  Transmission Date: 20210420
  Serious: Yes (Other)
  Sender: FDA-Public Use
  Company Number: CN-ASTRAZENECA-2021A012202

PATIENT
  Sex: Male

DRUGS (1)
  1. NEXIUM [Suspect]
     Active Substance: ESOMEPRAZOLE MAGNESIUM
     Indication: HELICOBACTER INFECTION
     Route: 048
     Dates: start: 2020

REACTIONS (3)
  - Infection [Unknown]
  - Neoplasm malignant [Unknown]
  - Helicobacter infection [Not Recovered/Not Resolved]
